FAERS Safety Report 19625320 (Version 1)
Quarter: 2021Q3

REPORT INFORMATION
  Report Type: Spontaneous
  Country: SI (occurrence: SI)
  Receive Date: 20210729
  Receipt Date: 20210729
  Transmission Date: 20211014
  Serious: Yes (Life-Threatening, Hospitalization, Other)
  Sender: FDA-Public Use
  Company Number: SI-CPL-002452

PATIENT
  Age: 59 Year
  Sex: Female

DRUGS (4)
  1. SILYBUM MARIANUM/SILYBUM MARIANUM EXTRACT/SILYBUM MARIANUM FRUIT [Concomitant]
     Active Substance: DIETARY SUPPLEMENT\HERBALS\MILK THISTLE
  2. INDAPAMIDE/PERINDOPRIL [Suspect]
     Active Substance: INDAPAMIDE\PERINDOPRIL
     Indication: HYPERTENSION
     Dosage: 4/1.25 MG
  3. ROSUVASTATIN/ROSUVASTATIN CALCIUM [Suspect]
     Active Substance: ROSUVASTATIN CALCIUM
     Indication: DYSLIPIDAEMIA
  4. CEFTRIAXONE. [Concomitant]
     Active Substance: CEFTRIAXONE
     Indication: ESCHERICHIA URINARY TRACT INFECTION
     Route: 042

REACTIONS (6)
  - Rhabdomyolysis [Recovered/Resolved]
  - Acute kidney injury [Recovering/Resolving]
  - Liver injury [Recovering/Resolving]
  - Metabolic acidosis [Recovering/Resolving]
  - Hyperphosphataemia [Recovering/Resolving]
  - Immune-mediated myositis [Recovered/Resolved]
